FAERS Safety Report 7264966-7 (Version None)
Quarter: 2011Q1

REPORT INFORMATION
  Report Type: 
  Country: None (occurrence: None)
  Receive Date: 20110131
  Receipt Date: 20110107
  Transmission Date: 20110831
  Serious: Yes (Other)
  Sender: FDA-Public Use
  Company Number: US-BAYER-2011-004028

PATIENT

DRUGS (1)
  1. CIPRO [Suspect]

REACTIONS (2)
  - ARTHROPATHY [None]
  - TENDON RUPTURE [None]
